FAERS Safety Report 6845762-9 (Version None)
Quarter: 2010Q3

REPORT INFORMATION
  Report Type: 
  Country: None (occurrence: None)
  Receive Date: 20100715
  Receipt Date: 20070827
  Transmission Date: 20110219
  Serious: No
  Sender: FDA-Public Use
  Company Number: US-PFIZER INC-2007071949

PATIENT
  Sex: Male
  Weight: 95.3 kg

DRUGS (2)
  1. CHANTIX [Suspect]
     Indication: SMOKING CESSATION THERAPY
     Route: 048
     Dates: start: 20070801
  2. ZANAFLEX [Concomitant]
     Indication: ARTHRITIS

REACTIONS (3)
  - ABNORMAL BEHAVIOUR [None]
  - ABNORMAL DREAMS [None]
  - EMOTIONAL DISORDER [None]
